FAERS Safety Report 11833366 (Version 1)
Quarter: 2015Q4

REPORT INFORMATION
  Report Type: Spontaneous
  Country: US (occurrence: US)
  Receive Date: 20151214
  Receipt Date: 20151214
  Transmission Date: 20160305
  Serious: No
  Sender: FDA-Public Use
  Company Number: US-PERRIGO-15US004386

PATIENT
  Age: 28 Year
  Sex: Female
  Weight: 63.49 kg

DRUGS (2)
  1. MINOXIDIL. [Suspect]
     Active Substance: MINOXIDIL
     Dosage: 1 ML, QD AT BEDTIME
     Route: 061
     Dates: start: 201503
  2. MINOXIDIL. [Suspect]
     Active Substance: MINOXIDIL
     Indication: ALOPECIA
     Dosage: 1 ML, QD AT BEDTIME
     Route: 061
     Dates: start: 201407, end: 201503

REACTIONS (2)
  - Inappropriate schedule of drug administration [Unknown]
  - Alopecia [Unknown]

NARRATIVE: CASE EVENT DATE: 201407
